FAERS Safety Report 16740225 (Version 4)
Quarter: 2019Q4

REPORT INFORMATION
  Report Type: Report from Study
  Country: JP (occurrence: JP)
  Receive Date: 20190826
  Receipt Date: 20191122
  Transmission Date: 20200122
  Serious: Yes (Other)
  Sender: FDA-Public Use
  Company Number: JP-009507513-1908JPN002245J

PATIENT
  Age: 26 Year
  Sex: Male
  Weight: 51 kg

DRUGS (26)
  1. LEUCOVORIN. [Concomitant]
     Active Substance: LEUCOVORIN
     Dosage: UNK
     Route: 041
     Dates: start: 20190805, end: 20190814
  2. SOLU-CORTEF [Concomitant]
     Active Substance: HYDROCORTISONE SODIUM SUCCINATE
  3. AZUNOL GARGLE LIQUID [Concomitant]
     Dosage: 5 MILLILITER, PRN
     Route: 051
     Dates: start: 20190824, end: 20190824
  4. METHOTREXATE. [Concomitant]
     Active Substance: METHOTREXATE
     Dosage: UNK
     Route: 041
     Dates: start: 20190805, end: 20190813
  5. FENTANYL CITRATE. [Concomitant]
     Active Substance: FENTANYL CITRATE
     Dosage: UNK
     Route: 051
     Dates: start: 20190805, end: 20190821
  6. GLUCOSE [Concomitant]
     Active Substance: DEXTROSE
     Dosage: UNK
     Route: 041
     Dates: start: 20190805, end: 20190825
  7. URSODEOXYCHOLIC ACID [Concomitant]
     Active Substance: URSODIOL
     Dosage: UNK UNK, TID
     Route: 048
     Dates: start: 20190805, end: 20190825
  8. CEFTAZIDIME. [Concomitant]
     Active Substance: CEFTAZIDIME
     Dosage: UNK
     Route: 041
     Dates: start: 20190805, end: 20190805
  9. FENTANYL CITRATE. [Concomitant]
     Active Substance: FENTANYL CITRATE
     Dosage: UNK
     Route: 051
     Dates: start: 20190805, end: 20190805
  10. VICCLOX [Concomitant]
     Active Substance: ACYCLOVIR SODIUM
     Dosage: UNK
     Route: 041
     Dates: start: 20190805, end: 20190819
  11. MAGNESIUM HYDROXIDE. [Concomitant]
     Active Substance: MAGNESIUM HYDROXIDE
     Dosage: UNK
     Route: 041
     Dates: start: 20190805, end: 20190825
  12. MEROPENEM HYDRATE [Concomitant]
     Active Substance: MEROPENEM
     Dosage: UNK
     Route: 051
     Dates: start: 20190805, end: 20190825
  13. SODIUM CHLORIDE. [Concomitant]
     Active Substance: SODIUM CHLORIDE
     Dosage: UNK
     Route: 041
     Dates: start: 20190805, end: 20190825
  14. HEPARIN SODIUM. [Concomitant]
     Active Substance: HEPARIN SODIUM
     Dosage: UNK
     Route: 051
     Dates: start: 20190805, end: 20190825
  15. AZUNOL GARGLE LIQUID [Concomitant]
     Dosage: 15 MILLILITER, PRN
     Route: 051
     Dates: start: 20190806, end: 20190806
  16. SODIUM CHLORIDE. [Concomitant]
     Active Substance: SODIUM CHLORIDE
     Dosage: UNK
     Route: 041
     Dates: start: 20190805, end: 20190825
  17. INTRALIPOS [Concomitant]
     Active Substance: SOYBEAN OIL
     Dosage: UNK
     Route: 051
     Dates: start: 20190806, end: 20190825
  18. ELNEOPA NF NO. 1 [Concomitant]
     Dosage: UNK
     Route: 041
     Dates: start: 20190805, end: 20190825
  19. FUNGUARD [Concomitant]
     Active Substance: MICAFUNGIN SODIUM
     Dosage: 150 MILLIGRAM, QD
     Route: 041
     Dates: start: 20190805, end: 20190825
  20. OMEPRAZOLE. [Concomitant]
     Active Substance: OMEPRAZOLE
     Dosage: 40 MILLIGRAM, QD
     Route: 051
     Dates: start: 20190805, end: 20190814
  21. SEISHOKU [Concomitant]
     Active Substance: SODIUM CHLORIDE
     Dosage: UNK
     Route: 051
     Dates: start: 20190805, end: 20190825
  22. ELNEOPA NF NO. 2 [Concomitant]
     Dosage: UNK
     Route: 041
     Dates: start: 20190805, end: 20190825
  23. PREVYMIS [Suspect]
     Active Substance: LETERMOVIR
     Indication: ANTIVIRAL PROPHYLAXIS
     Dosage: 480 MILLIGRAM, QD
     Route: 048
     Dates: start: 20190805, end: 20190820
  24. SODIUM CHLORIDE. [Concomitant]
     Active Substance: SODIUM CHLORIDE
     Dosage: UNK
     Route: 051
     Dates: start: 20190805, end: 20190821
  25. LANSOPRAZOLE OD [Concomitant]
     Active Substance: LANSOPRAZOLE
     Dosage: UNK UNK, QD
     Route: 048
     Dates: start: 20190815, end: 20190825
  26. PROGRAF [Concomitant]
     Active Substance: TACROLIMUS
     Dosage: UNK
     Route: 041
     Dates: start: 20190805, end: 20190825

REACTIONS (3)
  - Cytomegalovirus infection [Unknown]
  - Cytomegalovirus viraemia [Recovered/Resolved]
  - Acute graft versus host disease in skin [Unknown]

NARRATIVE: CASE EVENT DATE: 201908
